FAERS Safety Report 5925899-9 (Version None)
Quarter: 2008Q4

REPORT INFORMATION
  Report Type: 
  Country: None (occurrence: None)
  Receive Date: 20081021
  Receipt Date: 20081009
  Transmission Date: 20090506
  Serious: Yes (Other)
  Sender: FDA-Public Use
  Company Number: ZA-PFIZER INC-2008085334

PATIENT
  Age: 59 Year
  Sex: Male

DRUGS (1)
  1. MINIDIAB [Suspect]

REACTIONS (2)
  - NEPHROLITHIASIS [None]
  - PYELONEPHRITIS [None]
